FAERS Safety Report 9146432 (Version 2)
Quarter: 2013Q2

REPORT INFORMATION
  Report Type: Spontaneous
  Country: FR (occurrence: FR)
  Receive Date: 20130307
  Receipt Date: 20130606
  Transmission Date: 20140414
  Serious: Yes (Hospitalization)
  Sender: FDA-Public Use
  Company Number: FR-009507513-1302FRA013432

PATIENT
  Age: 4 Year
  Sex: Female
  Weight: 23 kg

DRUGS (3)
  1. CELESTENE [Suspect]
     Indication: EAR INFECTION
     Dosage: 200 GTT, QD
     Route: 048
     Dates: start: 20130213, end: 20130213
  2. FLUIMUCIL [Suspect]
     Indication: EAR INFECTION
     Dosage: 200 MG, UNK
     Route: 048
     Dates: start: 20130212, end: 20130213
  3. SOLACY [Suspect]
     Indication: EAR INFECTION
     Dosage: 1 DF, UNK
     Route: 048
     Dates: start: 20130212, end: 20130213

REACTIONS (3)
  - Pancreatitis acute [Not Recovered/Not Resolved]
  - Disseminated intravascular coagulation [Not Recovered/Not Resolved]
  - Hepatocellular injury [Not Recovered/Not Resolved]
